FAERS Safety Report 9450193 (Version 1)
Quarter: 2013Q3

REPORT INFORMATION
  Report Type: Spontaneous
  Country: JP (occurrence: JP)
  Receive Date: 20130809
  Receipt Date: 20130809
  Transmission Date: 20140515
  Serious: Yes (Life-Threatening, Hospitalization)
  Sender: FDA-Public Use
  Company Number: JP-BAYER-2013-096056

PATIENT
  Age: 63 Year
  Sex: Male

DRUGS (3)
  1. NEXAVAR [Suspect]
     Indication: RENAL CELL CARCINOMA
     Dosage: DAILY DOSE 600 MG
     Route: 048
  2. ADSORBIN [Concomitant]
     Dosage: 1 G, TID
     Route: 048
  3. BIOFERMIN [Concomitant]
     Dosage: UNK
     Route: 048

REACTIONS (1)
  - Cerebral infarction [Not Recovered/Not Resolved]
